FAERS Safety Report 7102672-X (Version None)
Quarter: 2010Q4

REPORT INFORMATION
  Report Type: 
  Country: None (occurrence: None)
  Receive Date: 20101115
  Receipt Date: 20101104
  Transmission Date: 20110411
  Serious: Yes (Hospitalization)
  Sender: FDA-Public Use
  Company Number: JP-JNJFOC-20091200810

PATIENT
  Age: 74 Year
  Sex: Female

DRUGS (6)
  1. ITRIZOLE [Suspect]
     Indication: ILL-DEFINED DISORDER
     Route: 048
     Dates: start: 20091005, end: 20091108
  2. ITRIZOLE [Suspect]
     Route: 048
     Dates: start: 20091005, end: 20091108
  3. RIFAMPICIN [Concomitant]
     Route: 048
  4. ISCOTIN [Concomitant]
     Route: 065
  5. DEPAS [Concomitant]
     Route: 048
  6. MUCOSTA [Concomitant]
     Route: 048

REACTIONS (2)
  - JAUNDICE [None]
  - MALAISE [None]
